FAERS Safety Report 20985917 (Version 4)
Quarter: 2024Q3

REPORT INFORMATION
  Report Type: Report from Study
  Country: US (occurrence: US)
  Receive Date: 20220621
  Receipt Date: 20240925
  Transmission Date: 20241016
  Serious: No
  Sender: GLAXOSMITHKLINE
  Company Number: US-GLAXOSMITHKLINE-US2022AMR094542

PATIENT
  Age: 67 Year
  Sex: Female

DRUGS (4)
  1. NIRAPARIB [Suspect]
     Active Substance: NIRAPARIB
     Indication: Malignant peritoneal neoplasm
     Dosage: 200 MG, QD
     Dates: start: 20220609
  2. NIRAPARIB [Suspect]
     Active Substance: NIRAPARIB
     Dosage: 1 DF, BID
     Dates: start: 20220613
  3. NIRAPARIB [Suspect]
     Active Substance: NIRAPARIB
     Dosage: 200 MG, QD
     Dates: end: 20220707
  4. XARELTO [Concomitant]
     Active Substance: RIVAROXABAN
     Indication: Product used for unknown indication
     Dosage: UNK

REACTIONS (10)
  - Abdominal pain upper [Recovered/Resolved]
  - Nausea [Recovered/Resolved]
  - Eating disorder [Recovered/Resolved]
  - Back pain [Recovered/Resolved]
  - Vaginal haemorrhage [Not Recovered/Not Resolved]
  - Loss of personal independence in daily activities [Not Recovered/Not Resolved]
  - Blood pressure increased [Recovered/Resolved]
  - Stress [Unknown]
  - Productive cough [Unknown]
  - Off label use [Unknown]

NARRATIVE: CASE EVENT DATE: 20220609
